FAERS Safety Report 5796623-8 (Version None)
Quarter: 2008Q3

REPORT INFORMATION
  Report Type: 
  Country: None (occurrence: None)
  Receive Date: 20080701
  Receipt Date: 20080624
  Transmission Date: 20090109
  Serious: Yes (Hospitalization)
  Sender: FDA-Public Use
  Company Number: CH-ROCHE-572135

PATIENT
  Sex: Male
  Weight: 79.8 kg

DRUGS (11)
  1. METHOXY POLYETHYLENE GLYCOL-EPOETIN BETA [Suspect]
     Route: 042
     Dates: start: 20080131
  2. LISINOPRIL [Concomitant]
     Indication: HYPERTENSION
     Dates: start: 20050906
  3. AMLODIPINE [Concomitant]
     Indication: HYPERTENSION
     Dates: start: 20061027
  4. CLOPIDOGREL [Concomitant]
     Dates: start: 20040518
  5. DREISAVIT N [Concomitant]
     Indication: DIALYSIS
     Dates: start: 20040515
  6. LEVOTHYROXINE SODIUM [Concomitant]
     Indication: HYPOTHYROIDISM
     Dosage: DRUG:LEVOTHYROXIN
     Dates: start: 20060321
  7. CALCITRIOL [Concomitant]
     Indication: HYPERPARATHYROIDISM
     Dates: start: 20070901
  8. COSOPT [Concomitant]
     Indication: GLAUCOMA
     Dosage: DOSE FORM:EYE DROPS
     Dates: start: 20070301
  9. PANTOPRAZOLE SODIUM [Concomitant]
     Indication: GASTRITIS
     Dates: start: 20070401
  10. SEVELAMER [Concomitant]
     Dates: start: 20070419, end: 20080104
  11. CALCIUMACETAT [Concomitant]
     Dosage: DRUG ALSO REPORTED AS CALCIUM ACETATE
     Dates: start: 20070426, end: 20080108

REACTIONS (1)
  - COLITIS ISCHAEMIC [None]
